FAERS Safety Report 14500170 (Version 1)
Quarter: 2018Q1

REPORT INFORMATION
  Report Type: Not Available
  Country: US (occurrence: US)
  Receive Date: 20180207
  Receipt Date: 20180207
  Transmission Date: 20180509
  Serious: No
  Sender: FDA-Public Use
  Company Number: US-FOUNDATIONCONSUMERHC-2017-US-014984

PATIENT
  Age: 44 Year
  Sex: Female
  Weight: 42.64 kg

DRUGS (2)
  1. MULTIVITAMIN [Concomitant]
     Active Substance: VITAMINS
  2. PLAN B ONE-STEP [Suspect]
     Active Substance: LEVONORGESTREL
     Dosage: 1 TAB PO
     Route: 048
     Dates: start: 20171206, end: 20171206

REACTIONS (4)
  - Menstrual disorder [Unknown]
  - Abdominal discomfort [Recovered/Resolved]
  - Headache [Recovered/Resolved]
  - Menstrual disorder [Recovered/Resolved]

NARRATIVE: CASE EVENT DATE: 20171211
